FAERS Safety Report 9418913 (Version 3)
Quarter: 2013Q4

REPORT INFORMATION
  Report Type: Other
  Country: US (occurrence: US)
  Receive Date: 20130725
  Receipt Date: 20131105
  Transmission Date: 20140711
  Serious: Yes (Death)
  Sender: FDA-Public Use
  Company Number: US-SHIRE-ALL1-2013-04986

PATIENT
  Sex: Male

DRUGS (1)
  1. LIALDA [Suspect]
     Indication: PRODUCT USED FOR UNKNOWN INDICATION
     Dosage: 1.2 G, 2X/DAY:BID
     Route: 048

REACTIONS (2)
  - Death [Fatal]
  - Drug prescribing error [Unknown]
